FAERS Safety Report 22179205 (Version 1)
Quarter: 2023Q2

REPORT INFORMATION
  Report Type: Spontaneous
  Country: FR (occurrence: FR)
  Receive Date: 20230406
  Receipt Date: 20230406
  Transmission Date: 20230721
  Serious: Yes (Death)
  Sender: FDA-Public Use
  Company Number: None

PATIENT
  Age: 53 Year
  Sex: Female
  Weight: 82 kg

DRUGS (5)
  1. METHOTREXATE [Suspect]
     Active Substance: METHOTREXATE
     Indication: Burkitt^s lymphoma
     Dosage: R-COPADEM PROTOCOL WITH DOSE ADJUSTMENT AT 3% + CORTICOSTEROID THERAPY AT 60MG/M2
     Dates: start: 20230225, end: 20230225
  2. CYCLOPHOSPHAMIDE [Concomitant]
     Active Substance: CYCLOPHOSPHAMIDE
     Indication: Burkitt^s lymphoma
     Dosage: R-COPADEM PROTOCOL, DOSE ADJUSTMENT AT 75% + CORTICOSTEROID THERAPY AT 60MG/M2
     Dates: start: 20230227, end: 20230301
  3. KEPPRA [Concomitant]
     Active Substance: LEVETIRACETAM
     Indication: Tonic clonic movements
     Dates: start: 20230216
  4. VINCRISTINE SULFATE [Concomitant]
     Active Substance: VINCRISTINE SULFATE
     Indication: Burkitt^s lymphoma
     Dosage: R-COPADEM PROTOCOL WITH DOSE ADJUSTMENT AT 50% + CORTICOSTEROID THERAPY AT 60MG/M2  , VINCRISTINE
     Dates: start: 20230225, end: 20230225
  5. RITUXIMAB [Concomitant]
     Active Substance: RITUXIMAB
     Indication: Burkitt^s lymphoma
     Dosage: R-COPADEM PROTOCOL + CORTICOSTEROID THERAPY AT 1MG/KG , ((MAMMIFERE/HAMSTER/CELLULES CHO))
     Dates: start: 20230224, end: 20230224

REACTIONS (3)
  - Pancytopenia [Fatal]
  - Haemorrhagic diathesis [Fatal]
  - Toxic epidermal necrolysis [Fatal]

NARRATIVE: CASE EVENT DATE: 20230303
